FAERS Safety Report 10063020 (Version 3)
Quarter: 2014Q3

REPORT INFORMATION
  Report Type: Spontaneous
  Country: JP (occurrence: JP)
  Receive Date: 20140407
  Receipt Date: 20140917
  Transmission Date: 20150326
  Serious: Yes (Hospitalization, Other)
  Sender: FDA-Public Use
  Company Number: JP-ASTRAZENECA-2014SE22848

PATIENT
  Age: 21 Year
  Sex: Male
  Weight: 56 kg

DRUGS (20)
  1. MIYA-BM [Concomitant]
     Active Substance: CLOSTRIDIUM BUTYRICUM SPORES STRAIN M-55
     Route: 048
     Dates: start: 20140321, end: 20140321
  2. PRECEDEX [Concomitant]
     Active Substance: DEXMEDETOMIDINE HYDROCHLORIDE
     Indication: SEDATION
     Dosage: DOSE UNKNOWN
     Route: 065
     Dates: start: 20140320, end: 20140408
  3. CEFAZOLIN NA [Concomitant]
     Dosage: DOSE UNKNOWN
     Route: 065
     Dates: start: 20140320, end: 20140323
  4. TELEMINSOFT [Concomitant]
     Indication: CONSTIPATION
     Route: 054
     Dates: start: 20140324
  5. CEFTRIAXONE NA [Concomitant]
     Active Substance: CEFTRIAXONE
     Dosage: DOSE UNKNOWN
     Route: 065
     Dates: start: 20140325, end: 20140408
  6. TSUMURA [Concomitant]
     Route: 048
     Dates: start: 20140328, end: 20140328
  7. TSUMURA DAIKENCHUTO EXTRACT GRANULES FOR ETHICAL USE [Concomitant]
     Active Substance: HERBALS
     Route: 048
     Dates: start: 20140322, end: 20140328
  8. METHYCOBAL [Concomitant]
     Active Substance: METHYLCOBALAMIN
     Route: 048
     Dates: start: 20140321, end: 20140321
  9. TAKEPRON [Concomitant]
     Active Substance: LANSOPRAZOLE
     Route: 048
     Dates: start: 20140322, end: 20140328
  10. METHYCOBAL [Concomitant]
     Active Substance: METHYLCOBALAMIN
     Route: 048
     Dates: start: 20140322, end: 20140328
  11. TSUMURA DAIKENCHUTO EXTRACT GRANULES FOR ETHICAL USE [Concomitant]
     Active Substance: HERBALS
     Route: 048
     Dates: start: 20140321, end: 20140321
  12. TSUMURA [Concomitant]
     Route: 048
     Dates: start: 20140322, end: 20140326
  13. DIPRIVAN [Suspect]
     Active Substance: PROPOFOL
     Indication: SEDATION
     Route: 042
     Dates: start: 20140320, end: 20140326
  14. TSUMURA [Concomitant]
     Route: 048
     Dates: start: 20140327, end: 20140327
  15. TSUMURA [Concomitant]
     Route: 048
     Dates: start: 20140321, end: 20140321
  16. MIYA-BM [Concomitant]
     Active Substance: CLOSTRIDIUM BUTYRICUM SPORES STRAIN M-55
     Route: 048
     Dates: start: 20140322, end: 20140328
  17. FENTANYL. [Concomitant]
     Active Substance: FENTANYL
     Indication: SEDATION
     Dosage: DOSE UNKNOWN
     Route: 042
     Dates: start: 20140320, end: 20140331
  18. DEXART [Concomitant]
     Active Substance: DEXAMETHASONE SODIUM PHOSPHATE
     Dosage: DOSE UNKNOWN
     Route: 065
     Dates: start: 20140320, end: 20140323
  19. ADRENAL HORMONE [Concomitant]
     Indication: HAEMATOMA
     Dosage: DOSE UNKNOWN
     Route: 065
     Dates: start: 20140320
  20. TSUMURA [Concomitant]
     Route: 048
     Dates: start: 20140327, end: 20140327

REACTIONS (1)
  - Rhabdomyolysis [Recovering/Resolving]

NARRATIVE: CASE EVENT DATE: 20140321
